FAERS Safety Report 11792339 (Version 1)
Quarter: 2015Q4

REPORT INFORMATION
  Report Type: Report from Study
  Country: PL (occurrence: PL)
  Receive Date: 20151201
  Receipt Date: 20151201
  Transmission Date: 20160305
  Serious: Yes (Other)
  Sender: FDA-Public Use
  Company Number: PL-ROCHE-1668542

PATIENT
  Age: 16 Year
  Sex: Female

DRUGS (1)
  1. PULMOZYME [Suspect]
     Active Substance: DORNASE ALFA
     Indication: PRODUCT USED FOR UNKNOWN INDICATION
     Dosage: AT 4 P.M.
     Route: 065
     Dates: start: 20141117

REACTIONS (6)
  - Increased bronchial secretion [Not Recovered/Not Resolved]
  - Haemoptysis [Unknown]
  - Asphyxia [Recovered/Resolved]
  - Cough [Not Recovered/Not Resolved]
  - Dyspnoea [Recovered/Resolved]
  - Spirometry abnormal [Unknown]

NARRATIVE: CASE EVENT DATE: 201505
